FAERS Safety Report 13294022 (Version 1)
Quarter: 2017Q1

REPORT INFORMATION
  Report Type: Spontaneous
  Country: GB (occurrence: GB)
  Receive Date: 20170303
  Receipt Date: 20170303
  Transmission Date: 20170428
  Serious: Yes (Hospitalization)
  Sender: FDA-Public Use
  Company Number: GB-NOVOPROD-533667

PATIENT
  Sex: Female

DRUGS (1)
  1. INSULATARD NPH HUMAN [Suspect]
     Active Substance: INSULIN HUMAN
     Indication: DIABETES MELLITUS
     Dosage: UNK
     Route: 065

REACTIONS (3)
  - Gingival bleeding [Unknown]
  - Eye haemorrhage [Unknown]
  - Epistaxis [Unknown]
